FAERS Safety Report 11058631 (Version 1)
Quarter: 2015Q2

REPORT INFORMATION
  Report Type: Spontaneous
  Country: US (occurrence: None)
  Receive Date: 20150422
  Receipt Date: 20150422
  Transmission Date: 20150821
  Serious: Yes (Hospitalization)
  Sender: FDA-Public Use
  Company Number: None

PATIENT
  Age: 28 Year
  Sex: Female
  Weight: 81 kg

DRUGS (2)
  1. CARVEDILOL. [Suspect]
     Active Substance: CARVEDILOL
     Indication: EJECTION FRACTION DECREASED
     Dates: start: 20140312
  2. HERCEPTIN [Suspect]
     Active Substance: TRASTUZUMAB
     Indication: BREAST CANCER
     Route: 042
     Dates: start: 201403, end: 20150129

REACTIONS (7)
  - Cough [None]
  - Left ventricular dysfunction [None]
  - Orthopnoea [None]
  - Pulmonary oedema [None]
  - Cardiac failure [None]
  - Fluid overload [None]
  - Fatigue [None]

NARRATIVE: CASE EVENT DATE: 20150211
